FAERS Safety Report 18778266 (Version 5)
Quarter: 2021Q2

REPORT INFORMATION
  Report Type: Spontaneous
  Country: US (occurrence: US)
  Receive Date: 20210123
  Receipt Date: 20210528
  Transmission Date: 20210717
  Serious: Yes (Death, Other)
  Sender: FDA-Public Use
  Company Number: US-009507513-2101USA007988

PATIENT
  Age: 74 Year
  Sex: Female

DRUGS (18)
  1. BENADRYL [Suspect]
     Active Substance: DIPHENHYDRAMINE HYDROCHLORIDE
     Dosage: DOSE UNKNOWN, EVERY 3 WEEKS
     Route: 042
     Dates: start: 20170202, end: 20190611
  2. PEPCID [Suspect]
     Active Substance: FAMOTIDINE
     Dosage: DOSE UNKNOWN, EVERY 3 WEEKS
     Route: 042
     Dates: start: 20170202, end: 20190611
  3. PRILOSEC [Concomitant]
     Active Substance: OMEPRAZOLE MAGNESIUM
     Indication: DYSPEPSIA
     Dosage: 20MG, ONCE A DAY
  4. DECADRON [Suspect]
     Active Substance: DEXAMETHASONE
     Dosage: 100 ML EVERY 3 WEEKS
     Route: 042
     Dates: start: 20170202, end: 20190611
  5. LENVATINIB MESYLATE [Suspect]
     Active Substance: LENVATINIB MESYLATE
     Dosage: 4 MG, EVERY DAY
     Route: 048
  6. PRINIVIL [Concomitant]
     Active Substance: LISINOPRIL
     Dosage: 40 MG, ONCE A DAY
  7. METFORMIN [Suspect]
     Active Substance: METFORMIN HYDROCHLORIDE
     Dosage: UNK
  8. ADVAIR HFA [Concomitant]
     Active Substance: FLUTICASONE PROPIONATE\SALMETEROL XINAFOATE
     Indication: LUNG DISORDER
     Dosage: 250/50 MCG, INHALE 1 PUFF EVERY 12 HOURS
  9. CARBOPLATIN. [Suspect]
     Active Substance: CARBOPLATIN
     Indication: ENDOMETRIAL CANCER
     Dosage: 450MG/45ML EVERY 3 WEEKS
     Route: 042
     Dates: start: 2018, end: 201906
  10. ADALAT [Concomitant]
     Active Substance: NIFEDIPINE
     Indication: HYPERTENSION
     Dosage: 60MG, ONE BY MOUTH EVERY DAY
     Route: 048
  11. TAXOL [Suspect]
     Active Substance: PACLITAXEL
     Indication: ENDOMETRIAL CANCER
     Dosage: 300MG/50ML EVERY 3 WEEKS
     Route: 042
     Dates: start: 201806, end: 201906
  12. AVASTIN [ATORVASTATIN CALCIUM] [Suspect]
     Active Substance: ATORVASTATIN CALCIUM
     Indication: ENDOMETRIAL CANCER
     Dosage: 400 MG EVERY 3 WEEKS
     Route: 042
     Dates: start: 2018, end: 20201223
  13. LIPITOR [Concomitant]
     Active Substance: ATORVASTATIN CALCIUM
     Indication: BLOOD CHOLESTEROL
     Dosage: 40MG, ONCE A DAY
  14. TOPROL XL [Concomitant]
     Active Substance: METOPROLOL SUCCINATE
     Indication: BLOOD CHOLESTEROL
     Dosage: 100MG, ONCE A DAY
  15. LENVATINIB MESYLATE [Suspect]
     Active Substance: LENVATINIB MESYLATE
     Dosage: 10 MG, EVERY DAY
     Route: 048
     Dates: start: 20210121
  16. ONDANSETRON [Suspect]
     Active Substance: ONDANSETRON
     Dosage: 100 ML EVERY 3 WEEKS
     Route: 042
     Dates: start: 20170202, end: 20190611
  17. COLECALCIFEROL [Concomitant]
     Active Substance: CHOLECALCIFEROL
     Dosage: 25 MCG 1 000UT, ONCE A DAY
  18. ARANESP [Suspect]
     Active Substance: DARBEPOETIN ALFA
     Dosage: DOSE UNKNOWN, EVERY 3 WEEKS
     Route: 042
     Dates: start: 20170202, end: 20190611

REACTIONS (17)
  - Carbohydrate antigen 125 increased [Unknown]
  - Abdominal discomfort [Unknown]
  - Decreased appetite [Unknown]
  - Death [Fatal]
  - Malignant neoplasm progression [Unknown]
  - Drug ineffective [Unknown]
  - Type 2 diabetes mellitus [Unknown]
  - Neuropathy peripheral [Unknown]
  - Central venous catheterisation [Unknown]
  - Anaemia [Unknown]
  - Diarrhoea [Unknown]
  - General physical health deterioration [Unknown]
  - Blood glucose decreased [Unknown]
  - Limb discomfort [Unknown]
  - Weight decreased [Unknown]
  - Oedema [Unknown]
  - Infection [Unknown]

NARRATIVE: CASE EVENT DATE: 2019
